FAERS Safety Report 5828803-7 (Version None)
Quarter: 2008Q3

REPORT INFORMATION
  Report Type: 
  Country: None (occurrence: None)
  Receive Date: 20080731
  Receipt Date: 20080522
  Transmission Date: 20090109
  Serious: No
  Sender: FDA-Public Use
  Company Number: KR-ELI_LILLY_AND_COMPANY-KR200805004721

PATIENT
  Age: 56 Year
  Sex: Male

DRUGS (3)
  1. CIALIS [Suspect]
     Indication: ERECTILE DYSFUNCTION
     Dosage: 10 MG, AS NEEDED
     Route: 048
  2. CIALIS [Suspect]
     Dosage: 5 MG, UNK
  3. ANTI-ASTHMATICS [Concomitant]

REACTIONS (1)
  - PHOTOPSIA [None]
